FAERS Safety Report 6809035-2 (Version None)
Quarter: 2010Q2

REPORT INFORMATION
  Report Type: 
  Country: None (occurrence: None)
  Receive Date: 20100630
  Receipt Date: 20100621
  Transmission Date: 20101027
  Serious: Yes (Hospitalization)
  Sender: FDA-Public Use
  Company Number: 2005BI021758

PATIENT
  Age: 37 Year
  Sex: Female

DRUGS (3)
  1. AVONEX [Suspect]
     Indication: MULTIPLE SCLEROSIS
     Route: 030
     Dates: start: 20000201, end: 20011201
  2. AVONEX [Suspect]
     Route: 030
     Dates: start: 20050924, end: 20060519
  3. AVONEX [Suspect]
     Route: 030
     Dates: start: 20090801

REACTIONS (5)
  - ARTHRALGIA [None]
  - CARDIOVASCULAR DISORDER [None]
  - DISCOMFORT [None]
  - OSTEONECROSIS [None]
  - PAIN [None]
